FAERS Safety Report 8013112-0 (Version None)
Quarter: 2011Q4

REPORT INFORMATION
  Report Type: 
  Country: None (occurrence: None)
  Receive Date: 20111229
  Receipt Date: 20111222
  Transmission Date: 20120403
  Serious: Yes (Other)
  Sender: FDA-Public Use
  Company Number: US-SANOFI-AVENTIS-2011SA084276

PATIENT
  Sex: Female

DRUGS (1)
  1. ALLEGRA-D 12 HOUR [Suspect]
     Route: 048

REACTIONS (4)
  - MEDICATION RESIDUE [None]
  - CONSTIPATION [None]
  - NIGHTMARE [None]
  - HALLUCINATION [None]
